FAERS Safety Report 18578667 (Version 1)
Quarter: 2020Q4

REPORT INFORMATION
  Report Type: Spontaneous
  Country: US (occurrence: US)
  Receive Date: 20201203
  Receipt Date: 20201203
  Transmission Date: 20210114
  Serious: Yes (Hospitalization)
  Sender: FDA-Public Use
  Company Number: None

PATIENT
  Age: 74 Year
  Sex: Male
  Weight: 101.2 kg

DRUGS (1)
  1. BAMLANIVIMAB. [Suspect]
     Active Substance: BAMLANIVIMAB
     Indication: COVID-19 PNEUMONIA
     Dosage: ?          OTHER FREQUENCY:ONCE;?
     Route: 042
     Dates: start: 20201126, end: 20201126

REACTIONS (7)
  - Upper gastrointestinal haemorrhage [None]
  - Condition aggravated [None]
  - Chronic kidney disease [None]
  - Therapy non-responder [None]
  - Anaemia [None]
  - Dyspnoea [None]
  - Acute kidney injury [None]

NARRATIVE: CASE EVENT DATE: 20201202
